FAERS Safety Report 12912254 (Version 2)
Quarter: 2016Q4

REPORT INFORMATION
  Report Type: Spontaneous
  Country: AU (occurrence: AU)
  Receive Date: 20161104
  Receipt Date: 20161130
  Transmission Date: 20170207
  Serious: Yes (Hospitalization)
  Sender: FDA-Public Use
  Company Number: AU-ASTRAZENECA-2016SF13997

PATIENT
  Age: 843 Month
  Sex: Female
  Weight: 75 kg

DRUGS (6)
  1. NALTREXONE [Concomitant]
     Active Substance: NALTREXONE
  2. GLICLAZIDE [Concomitant]
     Active Substance: GLICLAZIDE
  3. MULTIVITAMINS [Concomitant]
     Active Substance: VITAMINS
  4. XIGDUO XR [Suspect]
     Active Substance: DAPAGLIFLOZIN PROPANEDIOL\METFORMIN HYDROCHLORIDE
     Indication: TYPE 2 DIABETES MELLITUS
     Dosage: 10/500 MG TWO TIMES A DAY
     Route: 048
     Dates: start: 201403, end: 20160718
  5. GLICLAZIDE [Concomitant]
     Active Substance: GLICLAZIDE
  6. BENZODIAZEPINE [Concomitant]
     Active Substance: BENZODIAZEPINE

REACTIONS (5)
  - Dehydration [Unknown]
  - Dizziness [Recovered/Resolved]
  - Fall [Recovered/Resolved]
  - Dry mouth [Recovered/Resolved]
  - Hypotension [Recovered/Resolved]

NARRATIVE: CASE EVENT DATE: 201606
